FAERS Safety Report 5804273-X (Version None)
Quarter: 2008Q3

REPORT INFORMATION
  Report Type: 
  Country: None (occurrence: None)
  Receive Date: 20080709
  Receipt Date: 20080702
  Transmission Date: 20090109
  Serious: Yes (Other)
  Sender: FDA-Public Use
  Company Number: AT-WYE-G01810108

PATIENT

DRUGS (1)
  1. REFACTO [Suspect]
     Dosage: DOSE AND FREQUENCY ARE UNKNOWN

REACTIONS (1)
  - FACTOR VIII INHIBITION [None]
